FAERS Safety Report 4803663-1 (Version None)
Quarter: 2005Q4

REPORT INFORMATION
  Report Type: 
  Country: None (occurrence: None)
  Receive Date: 20051014
  Receipt Date: 20051003
  Transmission Date: 20060501
  Serious: Yes (Hospitalization)
  Sender: FDA-Public Use
  Company Number: 2005RR-00847

PATIENT
  Age: 93 Year
  Sex: Female

DRUGS (3)
  1. ASPIRIN [Suspect]
     Indication: ANTIPLATELET THERAPY
     Dosage: 75 MG, QD, ORAL
     Route: 048
     Dates: start: 20030101, end: 20050907
  2. BENDROFLUAZIDE TABLET 5 MG BP (BENDROFLUMETHIAZIDE) [Concomitant]
  3. ANASTROZOLE [Concomitant]

REACTIONS (3)
  - FALL [None]
  - MELAENA [None]
  - SYNCOPE [None]
